FAERS Safety Report 10263754 (Version 1)
Quarter: 2014Q2

REPORT INFORMATION
  Report Type: Report from Study
  Country: US (occurrence: US)
  Receive Date: 20140627
  Receipt Date: 20140627
  Transmission Date: 20141212
  Serious: Yes (Other)
  Sender: FDA-Public Use
  Company Number: US-ROCHE-1425611

PATIENT
  Sex: Female

DRUGS (1)
  1. AVASTIN [Suspect]
     Indication: RENAL CANCER
     Dosage: START DATE 3 MONTHS AGO
     Route: 065

REACTIONS (1)
  - Neoplasm progression [Unknown]
